FAERS Safety Report 17169272 (Version 1)
Quarter: 2019Q4

REPORT INFORMATION
  Report Type: Spontaneous
  Country: AU (occurrence: AU)
  Receive Date: 20191218
  Receipt Date: 20191218
  Transmission Date: 20200122
  Serious: Yes (Other)
  Sender: FDA-Public Use
  Company Number: AU-APOTEX-2019AP026116

PATIENT
  Sex: Female

DRUGS (1)
  1. APO-SALBUTAMOL [Suspect]
     Active Substance: ALBUTEROL
     Indication: PRODUCT USED FOR UNKNOWN INDICATION
     Dosage: UNK
     Route: 048

REACTIONS (5)
  - Ill-defined disorder [Recovered/Resolved]
  - Pneumonia [Recovered/Resolved]
  - Product appearance confusion [Unknown]
  - Product colour issue [Unknown]
  - Drug ineffective [Unknown]
